FAERS Safety Report 18749869 (Version 19)
Quarter: 2022Q4

REPORT INFORMATION
  Report Type: Spontaneous
  Country: CA (occurrence: CA)
  Receive Date: 20210117
  Receipt Date: 20221202
  Transmission Date: 20230113
  Serious: Yes (Hospitalization, Other)
  Sender: FDA-Public Use
  Company Number: CA-CELLTRION INC.-2021CA000371

PATIENT

DRUGS (23)
  1. INFLECTRA [Interacting]
     Active Substance: INFLIXIMAB-DYYB
     Indication: Crohn^s disease
     Dosage: 5 MG/KG AT Q 0, 2, 6, THEN EVERY 8 WEEKS
     Route: 042
     Dates: start: 20201126
  2. INFLECTRA [Interacting]
     Active Substance: INFLIXIMAB-DYYB
     Dosage: 5 MG/KG AT 2, 6, THEN EVERY 8 WEEKS
     Route: 042
     Dates: start: 20201209
  3. INFLECTRA [Interacting]
     Active Substance: INFLIXIMAB-DYYB
     Dosage: 5 MG/KG AT 2, 6, THEN EVERY 8 WEEKS
     Route: 042
     Dates: start: 20210107
  4. INFLECTRA [Interacting]
     Active Substance: INFLIXIMAB-DYYB
     Dosage: 5 MG/KG AT 2, 6, THEN EVERY 8 WEEKS
     Route: 042
     Dates: start: 20210316
  5. INFLECTRA [Interacting]
     Active Substance: INFLIXIMAB-DYYB
     Dosage: 5 MG/KG AT 2, 6, THEN EVERY 8 WEEKS
     Route: 042
     Dates: start: 20210511
  6. INFLECTRA [Interacting]
     Active Substance: INFLIXIMAB-DYYB
     Dosage: 5 MG/KG AT 2, 6, THEN EVERY 8 WEEKS
     Route: 042
     Dates: start: 20210705
  7. INFLECTRA [Interacting]
     Active Substance: INFLIXIMAB-DYYB
     Dosage: 280 MG (PATIENT IS SUPPOSED TO RECEIVE 5 MG/KG)
     Route: 042
     Dates: start: 20210901
  8. INFLECTRA [Interacting]
     Active Substance: INFLIXIMAB-DYYB
     Dosage: 5 MG/KG AT 2, 6, THEN EVERY 8 WEEKS
     Route: 042
     Dates: start: 20211025
  9. INFLECTRA [Interacting]
     Active Substance: INFLIXIMAB-DYYB
     Dosage: 5 MG/KG AT 2, 6, THEN EVERY 8 WEEKS
     Route: 042
     Dates: start: 20211221
  10. INFLECTRA [Interacting]
     Active Substance: INFLIXIMAB-DYYB
     Dosage: 5 MG/KG AT 2, 6, THEN EVERY 8 WEEKS
     Route: 042
     Dates: start: 20220215
  11. INFLECTRA [Interacting]
     Active Substance: INFLIXIMAB-DYYB
     Dosage: 5 MG/KG AT 2, 6, THEN EVERY 8 WEEKS
     Route: 042
     Dates: start: 20220412
  12. INFLECTRA [Interacting]
     Active Substance: INFLIXIMAB-DYYB
     Dosage: 5 MG/KG AT Q 0, 2, 6, THEN EVERY 8 WEEKS
     Route: 042
     Dates: start: 20220609
  13. INFLECTRA [Interacting]
     Active Substance: INFLIXIMAB-DYYB
     Dosage: 5 MG/KG AT Q 0, 2, 6, THEN EVERY 8 WEEKS
     Route: 041
     Dates: start: 20220802
  14. INFLECTRA [Interacting]
     Active Substance: INFLIXIMAB-DYYB
     Dosage: 5 MG/KG AT Q 0, 2, 6, THEN EVERY 8 WEEKS
     Route: 041
     Dates: start: 20220927
  15. INFLECTRA [Interacting]
     Active Substance: INFLIXIMAB-DYYB
     Dosage: 5 MG/KG AT Q 0, 2, 6, THEN EVERY 8 WEEKS
     Route: 041
     Dates: start: 20221122
  16. CORTEF [Concomitant]
     Active Substance: HYDROCORTISONE
     Dosage: 200 MG
  17. CORTISONE [Concomitant]
     Active Substance: CORTISONE
     Dosage: 25 MG TAPERING DOSE
     Route: 065
  18. CORTISONE [Concomitant]
     Active Substance: CORTISONE
     Dosage: 5 MG
     Route: 065
  19. CORTISONE [Concomitant]
     Active Substance: CORTISONE
     Dosage: 25 MG
     Route: 065
  20. IMURAN [Concomitant]
     Active Substance: AZATHIOPRINE
     Dosage: 1.5 DF (1.5 TABLET)
     Route: 048
     Dates: start: 20201126
  21. IMURAN [Concomitant]
     Active Substance: AZATHIOPRINE
     Dosage: 1 DF (1.5 TABLET), FREQUENCY INFORMATION NOT AVAILABLE
     Route: 048
     Dates: start: 20201126
  22. LORAZEPAM [Concomitant]
     Active Substance: LORAZEPAM
     Dosage: UNK
  23. PREDNISONE [Interacting]
     Active Substance: PREDNISONE
     Dosage: 25 MG, DOSAGE INFORMATION NOT AVAILABLE
     Route: 065

REACTIONS (36)
  - Haematochezia [Recovered/Resolved]
  - Drug hypersensitivity [Not Recovered/Not Resolved]
  - Incorrect dose administered [Unknown]
  - Heart rate decreased [Unknown]
  - Blood pressure fluctuation [Unknown]
  - Oral mucosal eruption [Unknown]
  - Drug interaction [Not Recovered/Not Resolved]
  - Arthralgia [Unknown]
  - Constipation [Not Recovered/Not Resolved]
  - Myalgia [Unknown]
  - Muscular weakness [Unknown]
  - Headache [Not Recovered/Not Resolved]
  - Urinary incontinence [Not Recovered/Not Resolved]
  - Polymenorrhoea [Not Recovered/Not Resolved]
  - Pain [Not Recovered/Not Resolved]
  - Anorectal discomfort [Not Recovered/Not Resolved]
  - Abdominal distension [Not Recovered/Not Resolved]
  - Faeces hard [Unknown]
  - Proctalgia [Unknown]
  - Anxiety [Unknown]
  - Crying [Unknown]
  - Weight increased [Unknown]
  - Weight decreased [Not Recovered/Not Resolved]
  - Fatigue [Not Recovered/Not Resolved]
  - Irritable bowel syndrome [Not Recovered/Not Resolved]
  - Menstruation irregular [Not Recovered/Not Resolved]
  - Aphthous ulcer [Unknown]
  - Frequent bowel movements [Unknown]
  - Enuresis [Not Recovered/Not Resolved]
  - Menstrual disorder [Not Recovered/Not Resolved]
  - Bladder disorder [Unknown]
  - Iron deficiency [Not Recovered/Not Resolved]
  - Progesterone decreased [Not Recovered/Not Resolved]
  - Diarrhoea [Not Recovered/Not Resolved]
  - Vaginal haemorrhage [Recovering/Resolving]
  - Condition aggravated [Not Recovered/Not Resolved]

NARRATIVE: CASE EVENT DATE: 20210101
